FAERS Safety Report 19951749 (Version 6)
Quarter: 2022Q1

REPORT INFORMATION
  Report Type: Report from Study
  Country: US (occurrence: US)
  Receive Date: 20211014
  Receipt Date: 20220309
  Transmission Date: 20220423
  Serious: Yes (Hospitalization, Other)
  Sender: FDA-Public Use
  Company Number: US-INSMED, INC.-2021-08324-US

PATIENT
  Sex: Female

DRUGS (2)
  1. ARIKAYCE [Suspect]
     Active Substance: AMIKACIN
     Indication: Mycobacterium avium complex infection
     Dosage: 590 MILLIGRAM, QD
     Route: 055
     Dates: start: 202104, end: 2021
  2. ARIKAYCE [Suspect]
     Active Substance: AMIKACIN
     Dosage: 590 MILLIGRAM, QD
     Route: 055
     Dates: start: 2021

REACTIONS (23)
  - Hospitalisation [Unknown]
  - Encephalitis [Unknown]
  - Meningitis [Recovered/Resolved]
  - COVID-19 [Recovered/Resolved]
  - Hypoaesthesia [Unknown]
  - Memory impairment [Not Recovered/Not Resolved]
  - Skin erosion [Unknown]
  - Peripheral coldness [Unknown]
  - Cold sweat [Unknown]
  - Feeling cold [Unknown]
  - Muscle spasms [Unknown]
  - Pruritus [Unknown]
  - Sputum increased [Recovered/Resolved]
  - Rash [Unknown]
  - Aphonia [Unknown]
  - Arthralgia [Unknown]
  - Productive cough [Unknown]
  - Cough [Recovered/Resolved]
  - Cough [Unknown]
  - Dysphonia [Unknown]
  - Product dose omission issue [Unknown]
  - Therapy interrupted [Unknown]
  - Intentional dose omission [Unknown]

NARRATIVE: CASE EVENT DATE: 20210101
